FAERS Safety Report 24046453 (Version 2)
Quarter: 2024Q3

REPORT INFORMATION
  Report Type: Report from Study
  Country: US (occurrence: US)
  Receive Date: 20240703
  Receipt Date: 20240708
  Transmission Date: 20241017
  Serious: No
  Sender: SANOFI AVENTIS
  Company Number: US-SA-SAC20240626001338

PATIENT
  Age: 58 Year
  Sex: Female

DRUGS (3)
  1. TEPLIZUMAB-MZWV [Suspect]
     Active Substance: TEPLIZUMAB-MZWV
     Indication: Diabetes prophylaxis
     Dosage: 14 UNK, QD
     Route: 042
     Dates: start: 20240617, end: 20240622
  2. TEPLIZUMAB-MZWV [Suspect]
     Active Substance: TEPLIZUMAB-MZWV
     Dosage: 1709.8 UG
     Route: 042
     Dates: start: 20240623
  3. DIPHENHYDRAMINE [Concomitant]
     Active Substance: DIPHENHYDRAMINE
     Dosage: UNK

REACTIONS (5)
  - Rash pruritic [Recovering/Resolving]
  - Fatigue [Recovering/Resolving]
  - Pruritus [Unknown]
  - Erythema [Unknown]
  - Skin swelling [Unknown]

NARRATIVE: CASE EVENT DATE: 20240601
